FAERS Safety Report 4875262-7 (Version None)
Quarter: 2006Q1

REPORT INFORMATION
  Report Type: 
  Country: None (occurrence: None)
  Receive Date: 20060104
  Receipt Date: 20051222
  Transmission Date: 20060701
  Serious: Yes (Other)
  Sender: FDA-Public Use
  Company Number: 2005172407

PATIENT
  Age: 43 Year
  Sex: Male

DRUGS (1)
  1. DOSTINEX [Suspect]
     Indication: HYPERPROLACTINAEMIA
     Dosage: 6 TABLETS/WEEK ORAL
     Route: 048

REACTIONS (3)
  - NEPHROTIC SYNDROME [None]
  - RENAL FAILURE [None]
  - THERAPY NON-RESPONDER [None]
